FAERS Safety Report 18317966 (Version 3)
Quarter: 2020Q4

REPORT INFORMATION
  Report Type: Report from Study
  Country: ES (occurrence: ES)
  Receive Date: 20200928
  Receipt Date: 20201202
  Transmission Date: 20210113
  Serious: Yes (Other)
  Sender: FDA-Public Use
  Company Number: ES-GLAXOSMITHKLINE-ES2020GSK190787

PATIENT
  Age: 74 Year
  Sex: Male
  Weight: 79 kg

DRUGS (1)
  1. BELANTAMAB MAFODOTIN. [Suspect]
     Active Substance: BELANTAMAB MAFODOTIN
     Indication: PLASMA CELL MYELOMA
     Dosage: 197.5 MG, CYC
     Route: 042
     Dates: start: 20200722

REACTIONS (8)
  - Corneal dystrophy [Recovered/Resolved with Sequelae]
  - Vision blurred [Unknown]
  - Keratitis [Recovered/Resolved with Sequelae]
  - Plasma cell myeloma [Unknown]
  - Condition aggravated [Recovering/Resolving]
  - Keratopathy [Unknown]
  - Ocular toxicity [Unknown]
  - Keratitis [Recovering/Resolving]

NARRATIVE: CASE EVENT DATE: 20200729
